FAERS Safety Report 6680857-4 (Version None)
Quarter: 2010Q2

REPORT INFORMATION
  Report Type: 
  Country: None (occurrence: None)
  Receive Date: 20100414
  Receipt Date: 20091223
  Transmission Date: 20101027
  Serious: Yes (Hospitalization)
  Sender: FDA-Public Use
  Company Number: CA-BAYER-200911381NA

PATIENT
  Age: 67 Year
  Sex: Male
  Weight: 65 kg

DRUGS (13)
  1. SORAFENIB [Suspect]
     Indication: DRUG USE FOR UNKNOWN INDICATION
     Dosage: TOTAL DAILY DOSE: 400 MG  UNIT DOSE: 200 MG
     Route: 048
     Dates: start: 20081222
  2. NORVASC [Concomitant]
     Indication: HYPERTENSION
     Dosage: TOTAL DAILY DOSE: 5 MG
     Dates: start: 19980101
  3. SOFLAX [Concomitant]
     Indication: CONSTIPATION
     Dosage: TOTAL DAILY DOSE: 200 MG  UNIT DOSE: 100 MG
     Dates: start: 20080101
  4. SENOKOT [Concomitant]
     Indication: CONSTIPATION
     Dosage: TOTAL DAILY DOSE: 17.2 MG  UNIT DOSE: 8.6 MG
     Dates: start: 20080101
  5. OXYCONTIN [Concomitant]
     Indication: PAIN
     Dosage: TOTAL DAILY DOSE: 90 MG
     Route: 048
  6. OXYCONTIN [Concomitant]
     Dosage: TOTAL DAILY DOSE: 120 MG  UNIT DOSE: 60 MG
     Dates: start: 20081229
  7. MULTI-VITAMINS [Concomitant]
     Indication: MEDICAL DIET
     Dates: start: 19970101
  8. OXYCODONE [Concomitant]
     Dosage: TOTAL DAILY DOSE: 20 MG
     Route: 048
  9. AMLODIPINE [Concomitant]
     Dosage: TOTAL DAILY DOSE: 5 MG
     Route: 048
  10. COLACE [Concomitant]
     Dosage: TOTAL DAILY DOSE: 200 MG
     Route: 048
  11. NYSTATIN [Concomitant]
     Dosage: TOTAL DAILY DOSE: 2000000 U
     Route: 048
  12. FRAGMIN [Concomitant]
     Dosage: TOTAL DAILY DOSE: 5000 U
  13. PREVACID [Concomitant]
     Dosage: TOTAL DAILY DOSE: 30 MG

REACTIONS (11)
  - CONSTIPATION [None]
  - DERMATITIS [None]
  - DYSPHAGIA [None]
  - DYSPNOEA [None]
  - FAILURE TO THRIVE [None]
  - FATIGUE [None]
  - HYPOVOLAEMIA [None]
  - MOOD ALTERED [None]
  - OESOPHAGEAL STENOSIS [None]
  - OESOPHAGITIS [None]
  - REGURGITATION [None]
